FAERS Safety Report 17896440 (Version 3)
Quarter: 2020Q3

REPORT INFORMATION
  Report Type: Spontaneous
  Country: US (occurrence: US)
  Receive Date: 20200615
  Receipt Date: 20200812
  Transmission Date: 20201103
  Serious: No
  Sender: FDA-Public Use
  Company Number: US-LEXICON PHARMACEUTICALS, INC-20-1606-00443

PATIENT
  Age: 69 Year
  Sex: Female

DRUGS (2)
  1. XERMELO [Suspect]
     Active Substance: TELOTRISTAT ETHYL
     Indication: CARCINOID SYNDROME
     Dates: start: 20170323
  2. XERMELO [Suspect]
     Active Substance: TELOTRISTAT ETHYL
     Dosage: DOSE REDUCED

REACTIONS (1)
  - Adverse drug reaction [Unknown]
